FAERS Safety Report 9772121 (Version 2)
Quarter: 2014Q1

REPORT INFORMATION
  Report Type: Spontaneous
  Country: PT (occurrence: PT)
  Receive Date: 20131219
  Receipt Date: 20140103
  Transmission Date: 20141002
  Serious: Yes (Hospitalization)
  Sender: FDA-Public Use
  Company Number: PT-JNJFOC-20131208525

PATIENT
  Age: 9 Year
  Sex: Female

DRUGS (9)
  1. CONCERTA [Suspect]
     Indication: DISTURBANCE IN ATTENTION
     Route: 048
  2. CONCERTA [Suspect]
     Indication: IRRITABILITY
     Route: 048
  3. CONCERTA [Suspect]
     Indication: IRRITABILITY
     Route: 048
  4. CONCERTA [Suspect]
     Indication: IRRITABILITY
     Route: 048
  5. CONCERTA [Suspect]
     Indication: ANXIETY
     Route: 048
  6. CONCERTA [Suspect]
     Indication: ANXIETY
     Route: 048
  7. CONCERTA [Suspect]
     Indication: ANXIETY
     Route: 048
  8. CONCERTA [Suspect]
     Indication: DISTURBANCE IN ATTENTION
     Route: 048
  9. CONCERTA [Suspect]
     Indication: DISTURBANCE IN ATTENTION
     Route: 048

REACTIONS (5)
  - Aphasia [Recovered/Resolved]
  - Staring [Recovered/Resolved]
  - Incoherent [Recovered/Resolved]
  - Cognitive disorder [Recovered/Resolved]
  - Amnesia [Recovered/Resolved]
